FAERS Safety Report 4931480-0 (Version None)
Quarter: 2006Q1

REPORT INFORMATION
  Report Type: 
  Country: None (occurrence: None)
  Receive Date: 20060303
  Receipt Date: 20060220
  Transmission Date: 20060701
  Serious: Yes (Other)
  Sender: FDA-Public Use
  Company Number: US-KINGPHARMUSA00001-K200600250

PATIENT
  Age: 83 Year
  Sex: Female
  Weight: 43 kg

DRUGS (5)
  1. LEVOXYL [Suspect]
     Indication: HYPOTHYROIDISM
     Dosage: UNK, QD
     Route: 048
     Dates: start: 19660101, end: 20060217
  2. LEVOXYL [Suspect]
     Dosage: DOSE REDUCED BY HALF
     Dates: start: 20060218
  3. CALCIUM GLUCONATE [Concomitant]
     Indication: OSTEOPOROSIS
     Dosage: UNK, QD
     Route: 048
  4. TYLENOL (CAPLET) [Concomitant]
     Indication: ARTHRITIS
     Route: 048
  5. MULTIVITAMIN ^LAPPE^ [Concomitant]
     Indication: EYE DISORDER
     Dosage: UNK, QD
     Route: 048

REACTIONS (7)
  - FEELING ABNORMAL [None]
  - GASTRIC CANCER [None]
  - INSOMNIA [None]
  - LETHARGY [None]
  - SOMNOLENCE [None]
  - TREMOR [None]
  - WEIGHT DECREASED [None]
